FAERS Safety Report 8590088-9 (Version None)
Quarter: 2012Q3

REPORT INFORMATION
  Report Type: 
  Country: None (occurrence: None)
  Receive Date: 20120813
  Receipt Date: 20120809
  Transmission Date: 20120928
  Serious: Yes (Hospitalization)
  Sender: FDA-Public Use
  Company Number: NL-AMGEN-NLDCT2012042103

PATIENT
  Age: 60 Year
  Sex: Female
  Weight: 63 kg

DRUGS (8)
  1. DENOSUMAB [Suspect]
     Indication: BREAST CANCER
     Dosage: UNK
     Route: 058
     Dates: start: 20120615
  2. TAXOTERE [Concomitant]
     Dosage: UNK
     Dates: start: 20120615
  3. ENALAPRIL MALEATE [Concomitant]
     Dosage: 5 MG, UNK
     Route: 048
     Dates: start: 20120601
  4. DOXORUBICIN HYDROCHLORIDE [Concomitant]
     Dosage: 80 MG, UNK
  5. FUROSEMIDE [Concomitant]
     Dosage: 40 MG, UNK
     Route: 048
     Dates: start: 20120601, end: 20120617
  6. BISOPROLOL [Concomitant]
     Dosage: 2.5 MG, UNK
     Route: 048
     Dates: start: 20120601
  7. LIPITOR [Concomitant]
     Dosage: 20 MG, UNK
     Route: 048
     Dates: start: 20120601
  8. CYCLOPHOSPHAMIDE [Concomitant]
     Dosage: 1000 MG, UNK
     Dates: start: 20120706

REACTIONS (1)
  - HYPERSENSITIVITY [None]
